FAERS Safety Report 5963282-0 (Version None)
Quarter: 2008Q4

REPORT INFORMATION
  Report Type: 
  Country: None (occurrence: None)
  Receive Date: 20081124
  Receipt Date: 20081121
  Transmission Date: 20090506
  Serious: Yes (Other)
  Sender: FDA-Public Use
  Company Number: A0757572A

PATIENT
  Age: 37 Year
  Sex: Female

DRUGS (1)
  1. NICORETTE [Suspect]
     Dates: start: 20081118, end: 20081119

REACTIONS (3)
  - ANAPHYLACTIC REACTION [None]
  - PHARYNGEAL OEDEMA [None]
  - URTICARIA [None]
